FAERS Safety Report 10081339 (Version 2)
Quarter: 2014Q2

REPORT INFORMATION
  Report Type: Spontaneous
  Country: FR (occurrence: FR)
  Receive Date: 20140416
  Receipt Date: 20140423
  Transmission Date: 20141212
  Serious: Yes (Other)
  Sender: FDA-Public Use
  Company Number: FR-ASTRAZENECA-2014SE26159

PATIENT
  Age: 57 Year
  Sex: Male

DRUGS (1)
  1. SYMBICORT TBH [Suspect]
     Indication: COUGH
     Dosage: 320/9 UG PER INHALATION, FREQUENCY UNKNOWN
     Route: 055

REACTIONS (2)
  - Diabetes mellitus [Recovered/Resolved]
  - Off label use [Recovered/Resolved]
